FAERS Safety Report 13647702 (Version 1)
Quarter: 2017Q2

REPORT INFORMATION
  Report Type: Spontaneous
  Country: IS (occurrence: IS)
  Receive Date: 20170613
  Receipt Date: 20170613
  Transmission Date: 20170830
  Serious: Yes (Other)
  Sender: FDA-Public Use
  Company Number: IS-TEVA-775636ISR

PATIENT
  Age: 31 Year
  Sex: Female
  Weight: 102 kg

DRUGS (1)
  1. STAKLOX HYLKI, HARA [Suspect]
     Active Substance: DICLOXACILLIN
     Indication: SKIN INFECTION
     Dosage: 2000 MILLIGRAM DAILY; 1X4
     Route: 065
     Dates: start: 20120405

REACTIONS (4)
  - Oedema peripheral [Not Recovered/Not Resolved]
  - Pain in extremity [Not Recovered/Not Resolved]
  - Hepatitis [Not Recovered/Not Resolved]
  - Joint swelling [Not Recovered/Not Resolved]

NARRATIVE: CASE EVENT DATE: 20120415
